FAERS Safety Report 11873282 (Version 2)
Quarter: 2016Q1

REPORT INFORMATION
  Report Type: Report from Study
  Country: GB (occurrence: GB)
  Receive Date: 20151228
  Receipt Date: 20160103
  Transmission Date: 20160526
  Serious: Yes (Other)
  Sender: FDA-Public Use
  Company Number: GB-TEVA-620202ACC

PATIENT
  Age: 34 Year
  Sex: Female

DRUGS (2)
  1. COPAXONE [Suspect]
     Active Substance: GLATIRAMER ACETATE
     Indication: MULTIPLE SCLEROSIS RELAPSE
     Dosage: 40 MILLIGRAM DAILY; 40 MG/ML
     Route: 058
  2. VITAMIN D [Concomitant]
     Active Substance: CHOLECALCIFEROL

REACTIONS (5)
  - Dyspnoea [Recovered/Resolved]
  - Hallucination [Recovering/Resolving]
  - Photopsia [Recovering/Resolving]
  - Migraine [Recovering/Resolving]
  - Rapid eye movements sleep abnormal [Recovering/Resolving]

NARRATIVE: CASE EVENT DATE: 20151212
